FAERS Safety Report 15280673 (Version 1)
Quarter: 2018Q3

REPORT INFORMATION
  Report Type: Spontaneous
  Country: US (occurrence: US)
  Receive Date: 20180731
  Receipt Date: 20180731
  Transmission Date: 20181010
  Serious: Yes (Other)
  Sender: FDA-Public Use
  Company Number: None

PATIENT
  Age: 74 Year
  Sex: Male
  Weight: 106.2 kg

DRUGS (10)
  1. TURMERIC [Concomitant]
     Active Substance: HERBALS\TURMERIC
  2. SIMVASTATIN. [Concomitant]
     Active Substance: SIMVASTATIN
  3. GLUCOSAMINE [Concomitant]
     Active Substance: GLUCOSAMINE
  4. NASACORT [Concomitant]
     Active Substance: TRIAMCINOLONE ACETONIDE
  5. VALSARTAN AND HYDROCHLOROTHIAZIDE [Suspect]
     Active Substance: HYDROCHLOROTHIAZIDE\VALSARTAN
     Indication: HYPERTENSION
     Dosage: ?          OTHER STRENGTH:320?25 MG;QUANTITY:1 TABLET(S);?
     Route: 048
     Dates: start: 20180713, end: 20180731
  6. NEXIUM [Concomitant]
     Active Substance: ESOMEPRAZOLE MAGNESIUM
  7. FLONASE [Concomitant]
     Active Substance: FLUTICASONE PROPIONATE
  8. ONE A DAY MEN^S MULTIVITAMIN [Concomitant]
  9. MONTELUKAST [Concomitant]
     Active Substance: MONTELUKAST SODIUM
  10. ANTIHISTAMINE [Concomitant]
     Active Substance: ANTIHISTAMINES NOS

REACTIONS (2)
  - Blood pressure increased [None]
  - Condition aggravated [None]

NARRATIVE: CASE EVENT DATE: 20180716
